FAERS Safety Report 7693168-5 (Version None)
Quarter: 2011Q3

REPORT INFORMATION
  Report Type: 
  Country: None (occurrence: None)
  Receive Date: 20110819
  Receipt Date: 20110817
  Transmission Date: 20111222
  Serious: Yes (Hospitalization)
  Sender: FDA-Public Use
  Company Number: GB-BRISTOL-MYERS SQUIBB COMPANY-15979164

PATIENT
  Age: 74 Year
  Sex: Female

DRUGS (13)
  1. QUININE SULFATE [Concomitant]
     Dosage: TDD
     Route: 048
  2. CALCEOS [Concomitant]
     Dosage: TDD
     Route: 048
  3. SERETIDE [Concomitant]
     Dosage: TOTAL DIALY DOSE,INHALED
     Route: 055
  4. THEOPHYLLINE [Concomitant]
     Dosage: TDD
     Route: 048
  5. ALBUTEROL [Concomitant]
     Dosage: TDD
     Route: 055
  6. TIOTROPIUM BROMIDE [Concomitant]
     Dosage: TIOTROPIUM,TDD
     Route: 055
  7. GEMCITABINE [Suspect]
     Dosage: UNK DOSE
     Route: 042
     Dates: start: 20110615, end: 20110615
  8. OMEPRAZOLE [Concomitant]
     Dosage: TDD
     Route: 048
  9. CARBOCISTEINE [Concomitant]
     Dosage: TDD
     Route: 048
  10. ALENDRONIC ACID [Concomitant]
     Dosage: TDD
     Route: 048
  11. DALTEPARIN SODIUM [Concomitant]
     Indication: LUNG NEOPLASM MALIGNANT
     Route: 058
     Dates: start: 20110311, end: 20110519
  12. CARBOPLATIN [Suspect]
     Dosage: UNK DOSE
     Route: 042
     Dates: start: 20110615, end: 20110615
  13. URSODIOL [Concomitant]
     Dosage: TDD
     Route: 048

REACTIONS (1)
  - DYSPNOEA [None]
